FAERS Safety Report 12970093 (Version 1)
Quarter: 2016Q4

REPORT INFORMATION
  Report Type: Report from Study
  Country: None (occurrence: US)
  Receive Date: 20161123
  Receipt Date: 20161123
  Transmission Date: 20170207
  Serious: Yes (Other)
  Sender: FDA-Public Use
  Company Number: US-ABBVIE-16K-163-1784982-00

PATIENT
  Sex: Female

DRUGS (2)
  1. HUMIRA [Suspect]
     Active Substance: ADALIMUMAB
     Indication: PSORIASIS
     Dosage: DAY ONE
     Route: 058
     Dates: start: 20161031, end: 20161031
  2. HUMIRA [Suspect]
     Active Substance: ADALIMUMAB
     Dosage: DAY EIGHT
     Route: 058
     Dates: start: 20161108, end: 20161108

REACTIONS (11)
  - Pruritus [Unknown]
  - Emotional disorder [Unknown]
  - Quality of life decreased [Unknown]
  - Skin irritation [Unknown]
  - Mycobacterium tuberculosis complex test positive [Unknown]
  - Helplessness [Unknown]
  - Pain of skin [Unknown]
  - General physical condition abnormal [Unknown]
  - Emotional distress [Unknown]
  - Anger [Unknown]
  - Frustration tolerance decreased [Unknown]

NARRATIVE: CASE EVENT DATE: 2016
